FAERS Safety Report 16730162 (Version 1)
Quarter: 2019Q3

REPORT INFORMATION
  Report Type: Report from Study
  Country: US (occurrence: US)
  Receive Date: 20190822
  Receipt Date: 20190822
  Transmission Date: 20191005
  Serious: Yes (Other)
  Sender: FDA-Public Use
  Company Number: US-TAKEDA-2019TUS047882

PATIENT
  Age: 61 Year
  Sex: Female

DRUGS (3)
  1. PONATINIB [Suspect]
     Active Substance: PONATINIB
     Indication: CHOLANGIOCARCINOMA
  2. PONATINIB [Suspect]
     Active Substance: PONATINIB
     Indication: GASTROINTESTINAL STROMAL TUMOUR
  3. PONATINIB [Suspect]
     Active Substance: PONATINIB
     Indication: METASTASES TO LIVER
     Dosage: 45 MILLIGRAM, QD
     Route: 048
     Dates: start: 20190807

REACTIONS (9)
  - Neoplasm progression [Unknown]
  - Constipation [Unknown]
  - Diarrhoea [Unknown]
  - Off label use [Unknown]
  - Abdominal pain [Not Recovered/Not Resolved]
  - Burning sensation [Recovering/Resolving]
  - Gastrointestinal disorder [Unknown]
  - Muscular weakness [Unknown]
  - Asthenia [Unknown]

NARRATIVE: CASE EVENT DATE: 20190807
